FAERS Safety Report 5973766-7 (Version None)
Quarter: 2008Q4

REPORT INFORMATION
  Report Type: 
  Country: None (occurrence: None)
  Receive Date: 20081201
  Receipt Date: 20080120
  Transmission Date: 20090506
  Serious: No
  Sender: FDA-Public Use
  Company Number: US-AMGEN-KDL261554

PATIENT
  Sex: Female

DRUGS (3)
  1. ENBREL [Suspect]
     Indication: RHEUMATOID ARTHRITIS
     Route: 058
     Dates: start: 20071105
  2. METHOTREXATE [Concomitant]
     Route: 048
     Dates: start: 20050801
  3. PREDNISONE TAB [Concomitant]

REACTIONS (4)
  - BLOOD GLUCOSE INCREASED [None]
  - INJECTION SITE PAIN [None]
  - JOINT STIFFNESS [None]
  - JOINT SWELLING [None]
